FAERS Safety Report 4970895-1 (Version None)
Quarter: 2006Q2

REPORT INFORMATION
  Report Type: 
  Country: None (occurrence: None)
  Receive Date: 20060406
  Receipt Date: 20060331
  Transmission Date: 20061013
  Serious: Yes (Death, Other)
  Sender: FDA-Public Use
  Company Number: 200610277BVD

PATIENT
  Age: 71 Year
  Sex: Male

DRUGS (4)
  1. NEXAVAR [Suspect]
     Indication: RENAL CELL CARCINOMA STAGE UNSPECIFIED
     Dosage: 200 MG, QD, UNK
     Route: 065
     Dates: start: 20060225, end: 20060228
  2. RAMIPRIL [Concomitant]
  3. MORPHINE [Concomitant]
  4. HCT [Concomitant]

REACTIONS (2)
  - ACUTE RIGHT VENTRICULAR FAILURE [None]
  - PULMONARY EMBOLISM [None]
